FAERS Safety Report 8573322 (Version 2)
Quarter: 2012Q4

REPORT INFORMATION
  Report Type: Spontaneous
  Country: DK (occurrence: None)
  Receive Date: 20120515
  Receipt Date: 20120831
  Transmission Date: 20130627
  Serious: Yes (Other)
  Sender: FDA-Public Use
  Company Number: 2012MA005989

PATIENT
  Age: 76 Year
  Sex: Male

DRUGS (4)
  1. GEMCITABINE HYDROCHLORIDE [Suspect]
     Indication: NON-SMALL CELL LUNG CANCER
     Dosage: 1600 MG, IV
     Route: 042
     Dates: start: 20120313
  2. SODIUM CHLORIDE [Concomitant]
  3. BISOPROLOL FUMARATE [Concomitant]
  4. WARFARIN SODIUM [Concomitant]

REACTIONS (1)
  - FEELING DRUNK [None]
